FAERS Safety Report 8371423-3 (Version None)
Quarter: 2012Q2

REPORT INFORMATION
  Report Type: 
  Country: None (occurrence: None)
  Receive Date: 20120518
  Receipt Date: 20120510
  Transmission Date: 20120825
  Serious: Yes (Hospitalization)
  Sender: FDA-Public Use
  Company Number: US-GLAXOSMITHKLINE-A0977752A

PATIENT
  Age: 63 Year
  Sex: Female
  Weight: 93.6 kg

DRUGS (1)
  1. ARZERRA [Suspect]
     Indication: CHRONIC LYMPHOCYTIC LEUKAEMIA
     Dosage: 2000MG WEEKLY
     Route: 042
     Dates: start: 20111129, end: 20120214

REACTIONS (4)
  - GAIT DISTURBANCE [None]
  - DIARRHOEA [None]
  - SOMNOLENCE [None]
  - MENTAL STATUS CHANGES [None]
